FAERS Safety Report 26154472 (Version 1)
Quarter: 2025Q4

REPORT INFORMATION
  Report Type: Spontaneous
  Country: US (occurrence: US)
  Receive Date: 20251215
  Receipt Date: 20251215
  Transmission Date: 20260118
  Serious: No
  Sender: IDORSIA PHARMACEUTICALS
  Company Number: US-IDORSIA-012860-2025-US

PATIENT
  Sex: Male

DRUGS (1)
  1. QUVIVIQ [Suspect]
     Active Substance: DARIDOREXANT
     Indication: Insomnia
     Dosage: 1 DOSAGE FORM, QD
     Route: 048

REACTIONS (3)
  - Psychiatric symptom [Unknown]
  - Panic reaction [Unknown]
  - Paranoia [Unknown]
